FAERS Safety Report 9686236 (Version 3)
Quarter: 2014Q1

REPORT INFORMATION
  Report Type: Spontaneous
  Country: CA (occurrence: CA)
  Receive Date: 20131113
  Receipt Date: 20140328
  Transmission Date: 20141002
  Serious: Yes (Other)
  Sender: FDA-Public Use
  Company Number: CA-PFIZER INC-2013319405

PATIENT
  Age: 67 Year
  Sex: Female

DRUGS (3)
  1. SOMAVERT [Suspect]
     Dosage: 10 MG, UNK
     Dates: start: 20131010
  2. SOMAVERT [Suspect]
     Dosage: 40 MG, UNK
     Dates: end: 20140108
  3. SOMAVERT [Suspect]
     Dosage: 20 MG, UNK
     Dates: start: 20140109

REACTIONS (3)
  - Pituitary tumour benign [Not Recovered/Not Resolved]
  - Insulin-like growth factor increased [Recovered/Resolved]
  - Injection site induration [Not Recovered/Not Resolved]
